FAERS Safety Report 4970269-3 (Version None)
Quarter: 2006Q1

REPORT INFORMATION
  Report Type: 
  Country: None (occurrence: None)
  Receive Date: 20060330
  Receipt Date: 20060321
  Transmission Date: 20060701
  Serious: Yes (Life-Threatening, Other)
  Sender: FDA-Public Use
  Company Number: 200610374BVD

PATIENT
  Age: 44 Year
  Sex: Male

DRUGS (3)
  1. PROLASTIN [Suspect]
     Indication: ALPHA-1 ANTI-TRYPSIN DEFICIENCY
     Dosage: 5000 IU, TOTAL DAILY, INTRAVENOUS
     Route: 042
     Dates: start: 20040101
  2. SPIRIVA [Concomitant]
  3. SYMBICORT [Concomitant]

REACTIONS (1)
  - ANAPHYLACTIC REACTION [None]
